FAERS Safety Report 8883348 (Version 1)
Quarter: 2012Q4

REPORT INFORMATION
  Report Type: Report from Study
  Country: JP (occurrence: JP)
  Receive Date: 20121102
  Receipt Date: 20121102
  Transmission Date: 20130627
  Serious: Yes (Other)
  Sender: FDA-Public Use
  Company Number: JP-BAXTER-2012BAX021750

PATIENT
  Sex: Male

DRUGS (5)
  1. ADVATE 250 [Suspect]
     Indication: HEMOPHILIA A
     Route: 042
     Dates: start: 20080609
  2. ADVATE 250 [Suspect]
     Indication: FACTOR VIII INHIBITION
  3. ADVATE [Suspect]
     Indication: HEMOPHILIA A
     Route: 042
     Dates: start: 20080609
  4. ADVATE [Suspect]
     Indication: FACTOR VIII INHIBITION
  5. NOVOSEVEN [Concomitant]
     Indication: HAEMORRHAGE
     Route: 042

REACTIONS (1)
  - Haemorrhage intracranial [Unknown]
